FAERS Safety Report 25009913 (Version 2)
Quarter: 2025Q1

REPORT INFORMATION
  Report Type: Report from Study
  Country: IT (occurrence: IT)
  Receive Date: 20250225
  Receipt Date: 20250307
  Transmission Date: 20250409
  Serious: Yes (Other)
  Sender: TEVA
  Company Number: IT-TEVA-VS-3302362

PATIENT

DRUGS (7)
  1. FENTANYL [Suspect]
     Active Substance: FENTANYL
     Indication: Sedative therapy
     Route: 040
  2. MIDAZOLAM [Suspect]
     Active Substance: MIDAZOLAM
     Indication: Sedative therapy
     Route: 040
  3. LIDOCAINE HYDROCHLORIDE [Suspect]
     Active Substance: LIDOCAINE HYDROCHLORIDE
     Indication: Sedative therapy
     Route: 065
  4. KETAMINE [Suspect]
     Active Substance: KETAMINE
     Indication: Sedative therapy
     Route: 040
  5. KETAMINE [Suspect]
     Active Substance: KETAMINE
     Indication: Sedative therapy
     Route: 040
  6. ATROPINE [Concomitant]
     Active Substance: ATROPINE
     Indication: Prophylaxis
     Route: 065
  7. HEPARIN [Concomitant]
     Active Substance: HEPARIN SODIUM
     Indication: Product used for unknown indication
     Route: 065

REACTIONS (1)
  - Hallucination, visual [Recovering/Resolving]
